FAERS Safety Report 9035317 (Version 1)
Quarter: 2013Q1

REPORT INFORMATION
  Report Type: Report from Study
  Country: US (occurrence: US)
  Receive Date: 20130129
  Receipt Date: 20130129
  Transmission Date: 20140127
  Serious: No
  Sender: FDA-Public Use
  Company Number: US-ABBOTT-12P-163-0893979-00

PATIENT
  Sex: Male
  Weight: 90.8 kg

DRUGS (5)
  1. HUMIRA 40 MG/0.8 ML PEN [Suspect]
     Indication: COLITIS ULCERATIVE
     Dates: start: 20111221
  2. PREDNISONE [Concomitant]
     Indication: COLITIS ULCERATIVE
  3. LISINOPRIL [Concomitant]
     Indication: HYPERTENSION
  4. HYDROCHLOROTHIAZIDE [Concomitant]
     Indication: HYPERTENSION
  5. AMITRIPTYLINE [Concomitant]
     Indication: HEADACHE

REACTIONS (2)
  - Pruritus generalised [Not Recovered/Not Resolved]
  - Off label use [Not Recovered/Not Resolved]
